FAERS Safety Report 22317737 (Version 1)
Quarter: 2023Q2

REPORT INFORMATION
  Report Type: Spontaneous
  Country: US (occurrence: US)
  Receive Date: 20230515
  Receipt Date: 20230515
  Transmission Date: 20230721
  Serious: No
  Sender: FDA-Public Use
  Company Number: US-NOVEN PHARMACEUTICALS, INC.-2022-NOV-US000374

PATIENT
  Age: 39 Year
  Sex: Female

DRUGS (2)
  1. DAYTRANA [Suspect]
     Active Substance: METHYLPHENIDATE
     Indication: Attention deficit hyperactivity disorder
     Dosage: 10 MILIGRAM/9 HOURS, UNKNOWN
     Route: 062
     Dates: start: 202204
  2. DAYTRANA [Suspect]
     Active Substance: METHYLPHENIDATE
     Dosage: 20 MILIGRAM/9 HOURS, UNKNOWN
     Route: 062
     Dates: start: 202203, end: 202204

REACTIONS (7)
  - Feeling jittery [Recovered/Resolved]
  - Therapeutic product effect increased [Recovered/Resolved]
  - Product dose omission issue [Not Recovered/Not Resolved]
  - Device difficult to use [Not Recovered/Not Resolved]
  - Device adhesion issue [Not Recovered/Not Resolved]
  - Device breakage [Not Recovered/Not Resolved]
  - Off label use [Not Recovered/Not Resolved]

NARRATIVE: CASE EVENT DATE: 20220301
